FAERS Safety Report 9203410 (Version 1)
Quarter: 2013Q1

REPORT INFORMATION
  Report Type: Spontaneous
  Country: US (occurrence: None)
  Receive Date: 20120709
  Receipt Date: 20120709
  Transmission Date: 20140127
  Serious: Yes (Life-Threatening, Hospitalization, Other)
  Sender: FDA-Public Use
  Company Number: PHEH2012US004741

PATIENT
  Age: 49 Year
  Sex: Male
  Weight: 77.2 kg

DRUGS (7)
  1. GLEEVEC (IMATINIB) UNKNOWN [Suspect]
     Indication: CHRONIC MYELOID LEUKAEMIA
     Route: 048
  2. ALEVE [Suspect]
     Route: 048
  3. ALLOPURINOL [Concomitant]
  4. VASOPRESSIN AND ANALOGUES (NO INGREDIENTS NO SUBSTANCES) [Concomitant]
  5. ALIKAL (PARACETAMOL) [Concomitant]
  6. LEVOPHED (NOREPINEPHRINE BITARTRATE) [Concomitant]
  7. POTASSSIUM (POTASSIUM) [Concomitant]

REACTIONS (28)
  - Gastrointestinal haemorrhage [None]
  - Dizziness [None]
  - Anaemia [None]
  - Hypotension [None]
  - White blood cell count increased [None]
  - Abdominal pain [None]
  - Asthenia [None]
  - Dry mouth [None]
  - Oxygen saturation decreased [None]
  - Respiratory distress [None]
  - Abdominal adhesions [None]
  - Refractory cytopenia with unilineage dysplasia [None]
  - Dyspnoea [None]
  - Tachycardia [None]
  - Hypokalaemia [None]
  - Blood glucose increased [None]
  - Drug resistance [None]
  - Red cell distribution width increased [None]
  - Neutrophil count increased [None]
  - Band neutrophil count increased [None]
  - Blood urea increased [None]
  - Rectal haemorrhage [None]
  - Haematochezia [None]
  - Fatigue [None]
  - Red blood cell count decreased [None]
  - Pallor [None]
  - Haemoglobin decreased [None]
  - Diarrhoea haemorrhagic [None]
